FAERS Safety Report 6649189-4 (Version None)
Quarter: 2010Q1

REPORT INFORMATION
  Report Type: 
  Country: None (occurrence: None)
  Receive Date: 20100324
  Receipt Date: 20100311
  Transmission Date: 20100710
  Serious: Yes (Other)
  Sender: FDA-Public Use
  Company Number: B0637650A

PATIENT
  Age: 68 Year
  Sex: Female

DRUGS (8)
  1. PAROXETINE HCL [Suspect]
     Indication: PARKINSONISM
     Dosage: 20MG PER DAY
     Route: 048
  2. PAROXETINE HCL [Suspect]
     Dosage: 10MG PER DAY
     Route: 048
  3. DONEPEZIL HCL [Suspect]
     Dosage: 3MG PER DAY
     Route: 048
  4. MAPROTILINE HYDROCHLORIDE [Concomitant]
     Indication: MAJOR DEPRESSION
     Dosage: 75MG PER DAY
     Route: 048
  5. UNKNOWN DRUG [Concomitant]
     Route: 065
  6. LEVODOPA [Concomitant]
     Indication: PARKINSONISM
     Route: 065
  7. PRAMIPEXOLE HYDROCHLORIDE [Concomitant]
     Indication: PARKINSONISM
     Route: 048
  8. DONEPEZIL HCL [Concomitant]
     Dosage: 5MG PER DAY
     Route: 048

REACTIONS (3)
  - DIZZINESS [None]
  - DYSKINESIA [None]
  - PARKINSON'S DISEASE [None]
